FAERS Safety Report 9317451 (Version 1)
Quarter: 2013Q2

REPORT INFORMATION
  Report Type: Spontaneous
  Country: US (occurrence: US)
  Receive Date: 20130530
  Receipt Date: 20130530
  Transmission Date: 20140414
  Serious: No
  Sender: FDA-Public Use
  Company Number: US-NOVEN-12US005326

PATIENT
  Age: 7 Year
  Sex: Male
  Weight: 18.59 kg

DRUGS (3)
  1. DAYTRANA [Suspect]
     Indication: ATTENTION DEFICIT/HYPERACTIVITY DISORDER
     Dosage: 20 MG, UNK
     Route: 062
     Dates: start: 201208
  2. CEPHALEXIN                         /00145501/ [Concomitant]
     Indication: MUSCLE TIGHTNESS
     Dosage: 250 MG/5 ML - 3 TSP/DAILY
     Route: 048
  3. CEPHALEXIN                         /00145501/ [Concomitant]
     Indication: NASOPHARYNGITIS

REACTIONS (3)
  - Sensation of foreign body [Not Recovered/Not Resolved]
  - Paranoia [Not Recovered/Not Resolved]
  - Abnormal behaviour [Not Recovered/Not Resolved]
